FAERS Safety Report 5147091-0 (Version None)
Quarter: 2006Q4

REPORT INFORMATION
  Report Type: 
  Country: None (occurrence: None)
  Receive Date: 20061103
  Receipt Date: 20060206
  Transmission Date: 20070319
  Serious: Yes (Other)
  Sender: FDA-Public Use
  Company Number: 13430

PATIENT
  Age: 60 Year
  Sex: Female

DRUGS (5)
  1. CARBOPLATIN [Suspect]
     Indication: OVARIAN CANCER
     Dosage: 345 MG DAILY IV
     Route: 042
     Dates: start: 20030225, end: 20030225
  2. WARFARIN SODIUM [Concomitant]
  3. IBUPROFEN [Concomitant]
  4. AMITRIPTYLINE HCL [Concomitant]
  5. CO-PROXAMOL /00016701/ [Concomitant]

REACTIONS (2)
  - ANAPHYLACTIC REACTION [None]
  - PARAESTHESIA [None]
